FAERS Safety Report 8331345-0 (Version None)
Quarter: 2012Q2

REPORT INFORMATION
  Report Type: 
  Country: None (occurrence: None)
  Receive Date: 20120502
  Receipt Date: 20120416
  Transmission Date: 20120825
  Serious: No
  Sender: FDA-Public Use
  Company Number: US-AMGEN-USASP2012024237

PATIENT
  Age: 48 Year
  Sex: Female

DRUGS (1)
  1. ENBREL [Suspect]
     Indication: PSORIASIS
     Dosage: 50 MG, QWK
     Dates: start: 20110615

REACTIONS (7)
  - THROAT IRRITATION [None]
  - CHILLS [None]
  - HYPERHIDROSIS [None]
  - PRODUCTIVE COUGH [None]
  - LACRIMATION INCREASED [None]
  - PHARYNGITIS STREPTOCOCCAL [None]
  - PYREXIA [None]
